FAERS Safety Report 6049089-7 (Version None)
Quarter: 2009Q1

REPORT INFORMATION
  Report Type: 
  Country: None (occurrence: None)
  Receive Date: 20090123
  Receipt Date: 20090116
  Transmission Date: 20090719
  Serious: Yes (Hospitalization)
  Sender: FDA-Public Use
  Company Number: US-ABBOTT-09P-163-0498162-00

PATIENT
  Sex: Female
  Weight: 86.26 kg

DRUGS (2)
  1. ERYTHROMYCIN [Suspect]
     Indication: BRONCHITIS
     Route: 048
     Dates: start: 19860101, end: 19860101
  2. TETRACYCLINE [Suspect]
     Indication: BRONCHITIS
     Route: 048
     Dates: start: 19860101, end: 19860101

REACTIONS (2)
  - HEPATIC ENZYME INCREASED [None]
  - TRAUMATIC LIVER INJURY [None]
